FAERS Safety Report 8247171-7 (Version None)
Quarter: 2012Q1

REPORT INFORMATION
  Report Type: 
  Country: None (occurrence: None)
  Receive Date: 20120330
  Receipt Date: 20120319
  Transmission Date: 20120608
  Serious: Yes (Hospitalization, Other)
  Sender: FDA-Public Use
  Company Number: US-ELI_LILLY_AND_COMPANY-US201203005591

PATIENT
  Sex: Female

DRUGS (3)
  1. GEMCITABINE HYDROCHLORIDE [Suspect]
     Dosage: UNK
  2. ERBITUX [Concomitant]
     Indication: BILE DUCT CANCER
     Dosage: 400 MG, WEEKLY (1/W)
  3. ADRIAMYCIN PFS [Concomitant]
     Indication: BILE DUCT CANCER

REACTIONS (3)
  - HYDROCEPHALUS [None]
  - MALIGNANT HYPERTENSION [None]
  - NEPHROTIC SYNDROME [None]
